FAERS Safety Report 7866288-X (Version None)
Quarter: 2011Q4

REPORT INFORMATION
  Report Type: 
  Country: None (occurrence: None)
  Receive Date: 20111028
  Receipt Date: 20110526
  Transmission Date: 20120403
  Serious: No
  Sender: FDA-Public Use
  Company Number: US-GLAXOSMITHKLINE-A0929300A

PATIENT
  Age: 67 Year
  Sex: Male

DRUGS (8)
  1. GABAPENTIN [Concomitant]
  2. PRAVASTATIN [Concomitant]
  3. PROAIR HFA [Concomitant]
  4. LISINOPRIL [Concomitant]
  5. PERCOCET [Concomitant]
  6. ADVAIR DISKUS 100/50 [Suspect]
     Indication: CHRONIC OBSTRUCTIVE PULMONARY DISEASE
     Dosage: 1PUFF TWICE PER DAY
     Route: 055
     Dates: start: 20110317
  7. MELOXICAM [Concomitant]
  8. OMEPRAZOLE [Concomitant]

REACTIONS (2)
  - PRODUCT QUALITY ISSUE [None]
  - DRUG INEFFECTIVE [None]
